FAERS Safety Report 6655319-0 (Version None)
Quarter: 2010Q1

REPORT INFORMATION
  Report Type: 
  Country: None (occurrence: None)
  Receive Date: 20100329
  Receipt Date: 20100317
  Transmission Date: 20100710
  Serious: Yes (Death, Other)
  Sender: FDA-Public Use
  Company Number: EG-PFIZER INC-2010034918

PATIENT
  Age: 50 Year
  Sex: Male

DRUGS (1)
  1. SUNITINIB MALATE [Suspect]
     Indication: METASTATIC RENAL CELL CARCINOMA
     Dosage: 50 MG, 1X/DAY FOR 4 WEEKS ON AND 2 WEEKS OFF
     Dates: start: 20090301, end: 20090901

REACTIONS (4)
  - ANAEMIA [None]
  - DEATH [None]
  - HYPERTENSION [None]
  - NEUTROPENIA [None]
